FAERS Safety Report 21666869 (Version 1)
Quarter: 2022Q4

REPORT INFORMATION
  Report Type: Spontaneous
  Country: DE (occurrence: DE)
  Receive Date: 20221201
  Receipt Date: 20221201
  Transmission Date: 20230113
  Serious: Yes (Other)
  Sender: FDA-Public Use
  Company Number: DE-BoehringerIngelheim-2022-BI-205087

PATIENT
  Age: 71 Year
  Sex: Male
  Weight: 92 kg

DRUGS (20)
  1. TIOTROPIUM [Suspect]
     Active Substance: TIOTROPIUM
     Indication: Asthma
     Route: 055
  2. TAMSULOSIN [Concomitant]
     Active Substance: TAMSULOSIN
     Indication: Product used for unknown indication
  3. Reproterol/DNCG metered dose inhaler [Concomitant]
     Indication: Product used for unknown indication
     Dosage: 1-2 PUFFS
     Route: 055
  4. METHYLPREDNISOLONE [Concomitant]
     Active Substance: METHYLPREDNISOLONE
     Indication: Product used for unknown indication
     Dosage: 0-16MG
  5. Salmeterol/fluticasone 50/500 mcg diskus [Concomitant]
     Indication: Product used for unknown indication
  6. Theophyllin 350 mg [Concomitant]
     Indication: Product used for unknown indication
  7. MONTELUKAST [Concomitant]
     Active Substance: MONTELUKAST SODIUM
     Indication: Product used for unknown indication
  8. salbutamol/ipratropium solution [Concomitant]
     Indication: Product used for unknown indication
     Dosage: ?PARI BOY? INH. 2X /DAY WITH SALBUTAMOL/IPRATROPIUM SOLUTION [FOR INHALATION] 2 ML NACL
     Route: 055
  9. DIGOXIN [Concomitant]
     Active Substance: DIGOXIN
     Indication: Product used for unknown indication
  10. PIRETANIDE [Concomitant]
     Active Substance: PIRETANIDE
     Indication: Product used for unknown indication
  11. VERAPAMIL [Concomitant]
     Active Substance: VERAPAMIL HYDROCHLORIDE
     Indication: Product used for unknown indication
  12. ASS  100 [Concomitant]
     Indication: Product used for unknown indication
  13. ATORVASTATIN [Concomitant]
     Active Substance: ATORVASTATIN
     Indication: Product used for unknown indication
  14. BUSERELIN [Concomitant]
     Active Substance: BUSERELIN
     Indication: Product used for unknown indication
     Route: 058
  15. ALBUTEROL [Concomitant]
     Active Substance: ALBUTEROL
     Indication: Infection
     Dosage: 1-2 PUFFS
     Route: 055
  16. ALBUTEROL [Concomitant]
     Active Substance: ALBUTEROL
     Dosage: STEAM INHALATION
     Route: 055
  17. IPRATROPIUM [Concomitant]
     Active Substance: IPRATROPIUM
     Indication: Infection
     Dosage: STEAM INHALATION
     Route: 055
  18. MEPOLIZUMAB [Concomitant]
     Active Substance: MEPOLIZUMAB
     Indication: Infection
     Route: 055
     Dates: start: 201506
  19. RESLIZUMAB [Concomitant]
     Active Substance: RESLIZUMAB
     Indication: Infection
     Route: 055
     Dates: start: 201706
  20. BENRALIZUMAB [Concomitant]
     Active Substance: BENRALIZUMAB
     Indication: Infection
     Route: 055
     Dates: start: 201806

REACTIONS (9)
  - Asthma [Unknown]
  - Asthma [Unknown]
  - Asthma [Unknown]
  - Asthma [Unknown]
  - Asthma [Unknown]
  - Pneumonia [Unknown]
  - Obstruction [Unknown]
  - Lung hyperinflation [Unknown]
  - Infection [Unknown]

NARRATIVE: CASE EVENT DATE: 20170301
